FAERS Safety Report 5348983-X (Version None)
Quarter: 2007Q2

REPORT INFORMATION
  Report Type: 
  Country: None (occurrence: None)
  Receive Date: 20070516
  Receipt Date: 20060511
  Transmission Date: 20071010
  Serious: Yes (Life-Threatening, Hospitalization)
  Sender: FDA-Public Use
  Company Number: WAES 0605USA02051

PATIENT
  Age: 40 Year
  Sex: Male

DRUGS (2)
  1. CRIXIVAN [Suspect]
     Indication: HIV INFECTION
     Dosage: 800 MG/Q8H/PO
     Route: 048
  2. COMBIVIR [Concomitant]

REACTIONS (2)
  - NEPHROLITHIASIS [None]
  - PANCREATITIS [None]
